FAERS Safety Report 5404963-7 (Version None)
Quarter: 2007Q3

REPORT INFORMATION
  Report Type: 
  Country: None (occurrence: None)
  Receive Date: 20070803
  Receipt Date: 20070724
  Transmission Date: 20080115
  Serious: Yes (Hospitalization)
  Sender: FDA-Public Use
  Company Number: BG-AMGEN-UK229790

PATIENT
  Sex: Female

DRUGS (10)
  1. DARBEPOETIN ALFA - BLINDED [Suspect]
     Indication: CARDIAC FAILURE
     Route: 058
     Dates: start: 20061020, end: 20070504
  2. FOSINOPRIL SODIUM [Concomitant]
     Route: 048
     Dates: start: 20030701
  3. BISOPROLOL FUMARATE [Concomitant]
     Route: 048
     Dates: start: 20000701
  4. FUROSEMIDE [Concomitant]
     Route: 048
     Dates: start: 20051001
  5. FELODIPINE [Concomitant]
     Route: 048
     Dates: start: 20051001
  6. LOSARTAN POTASSIUM [Concomitant]
     Route: 048
     Dates: start: 20060101
  7. CLONIDINE [Concomitant]
     Route: 048
     Dates: start: 20060101
  8. IRON [Concomitant]
     Route: 048
     Dates: start: 20061001
  9. HYDROCHLOROTHIAZIDE [Concomitant]
     Route: 065
  10. HEPARIN [Concomitant]
     Route: 065

REACTIONS (2)
  - HYPERTENSION [None]
  - ISCHAEMIC STROKE [None]
